FAERS Safety Report 25276399 (Version 1)
Quarter: 2025Q2

REPORT INFORMATION
  Report Type: Spontaneous
  Country: US (occurrence: US)
  Receive Date: 20250507
  Receipt Date: 20250507
  Transmission Date: 20250717
  Serious: Yes (Other)
  Sender: BIOVITRUM
  Company Number: US-BIOVITRUM-2025-US-006301

PATIENT
  Age: 53 Year
  Sex: Male

DRUGS (1)
  1. DOPTELET [Suspect]
     Active Substance: AVATROMBOPAG MALEATE
     Indication: Thrombocytopenia
     Route: 048

REACTIONS (2)
  - Portal vein thrombosis [Unknown]
  - Hepatic cancer [Unknown]
